FAERS Safety Report 8190650-1 (Version None)
Quarter: 2012Q1

REPORT INFORMATION
  Report Type: 
  Country: None (occurrence: None)
  Receive Date: 20120307
  Receipt Date: 20120228
  Transmission Date: 20120608
  Serious: Yes (Hospitalization)
  Sender: FDA-Public Use
  Company Number: US-AMGEN-USASP2011066510

PATIENT
  Age: 69 Year
  Sex: Female

DRUGS (1)
  1. ENBREL [Suspect]
     Indication: PSORIATIC ARTHROPATHY
     Dosage: 50 MG, UNK
     Dates: start: 20040301

REACTIONS (9)
  - DEHYDRATION [None]
  - FOOT DEFORMITY [None]
  - DIARRHOEA [None]
  - NAUSEA [None]
  - CHOLELITHIASIS [None]
  - HYPERKERATOSIS [None]
  - HYPOTENSION [None]
  - BACK PAIN [None]
  - BUNION [None]
